FAERS Safety Report 17911084 (Version 9)
Quarter: 2020Q4

REPORT INFORMATION
  Report Type: Report from Study
  Country: US (occurrence: US)
  Receive Date: 20200618
  Receipt Date: 20201229
  Transmission Date: 20210113
  Serious: Yes (Other)
  Sender: FDA-Public Use
  Company Number: NVSC2020US170582

PATIENT
  Age: 57 Year
  Sex: Female

DRUGS (2)
  1. ENTRESTO [Suspect]
     Active Substance: SACUBITRIL\VALSARTAN
     Dosage: 150 MG (100 MG QAM AND 50 MG QHS)
     Route: 048
     Dates: start: 202004
  2. ENTRESTO [Suspect]
     Active Substance: SACUBITRIL\VALSARTAN
     Indication: CARDIAC FAILURE
     Dosage: 100 MG, BID (49/51)
     Route: 048
     Dates: start: 202003

REACTIONS (28)
  - Product dose omission issue [Not Recovered/Not Resolved]
  - Depression [Not Recovered/Not Resolved]
  - Malaise [Unknown]
  - Anxiety [Not Recovered/Not Resolved]
  - Chest pain [Recovering/Resolving]
  - Dyspnoea [Recovering/Resolving]
  - Anosmia [Recovering/Resolving]
  - Tooth loss [Unknown]
  - Stress [Not Recovered/Not Resolved]
  - COVID-19 [Recovering/Resolving]
  - Diabetes mellitus [Not Recovered/Not Resolved]
  - Crying [Unknown]
  - Memory impairment [Recovering/Resolving]
  - Pyrexia [Unknown]
  - Ageusia [Recovering/Resolving]
  - Weight fluctuation [Unknown]
  - Blood pressure systolic increased [Unknown]
  - Swelling face [Unknown]
  - Dysphonia [Unknown]
  - Anger [Not Recovered/Not Resolved]
  - Chest discomfort [Recovering/Resolving]
  - Cough [Recovering/Resolving]
  - Aphasia [Unknown]
  - Hypotension [Recovering/Resolving]
  - Dizziness [Unknown]
  - General physical health deterioration [Unknown]
  - Agitation [Not Recovered/Not Resolved]
  - Fatigue [Recovering/Resolving]

NARRATIVE: CASE EVENT DATE: 202003
